FAERS Safety Report 5130017-3 (Version None)
Quarter: 2006Q4

REPORT INFORMATION
  Report Type: 
  Country: None (occurrence: None)
  Receive Date: 20061013
  Receipt Date: 20061003
  Transmission Date: 20070319
  Serious: Yes (Other)
  Sender: FDA-Public Use
  Company Number: 2006100902

PATIENT
  Age: 66 Year
  Sex: Female
  Weight: 61.6892 kg

DRUGS (2)
  1. ACCUPRIL [Suspect]
     Indication: HYPERTENSION
     Dosage: 10 MG (10 MG, 1 IN 1 D), ORAL
     Route: 048
     Dates: start: 19980201, end: 20060817
  2. ASPIRIN [Concomitant]

REACTIONS (5)
  - FATIGUE [None]
  - GASTRIC DISORDER [None]
  - MALAISE [None]
  - RENAL PAIN [None]
  - TINNITUS [None]
